FAERS Safety Report 8968771 (Version 1)
Quarter: 2012Q4

REPORT INFORMATION
  Report Type: 
  Country: NO (occurrence: NO)
  Receive Date: 20121217
  Receipt Date: 20121217
  Transmission Date: 20130627
  Serious: Yes (Death, Hospitalization, Other)
  Sender: FDA-Public Use
  Company Number: NO-ACTELION-A-CH2012-76033

PATIENT
  Age: 74 Year
  Sex: Female

DRUGS (13)
  1. TRACLEER [Suspect]
     Indication: DIGITAL ULCER
     Dosage: 125 mg, bid
     Route: 048
     Dates: end: 20110107
  2. TRACLEER [Suspect]
     Dosage: UNK
     Route: 048
     Dates: start: 20090226
  3. AMOXICILLIN [Concomitant]
  4. BURINEX [Concomitant]
     Dosage: 3 mg, qd
  5. DICLOCIL [Concomitant]
  6. EMCONCOR [Concomitant]
  7. ENALAPRIL [Concomitant]
  8. LEVAXIN [Concomitant]
  9. MAREVAN [Concomitant]
  10. SOMAC [Concomitant]
  11. ZOCOR [Concomitant]
  12. ZOPICLONE [Concomitant]
  13. FENTANYL [Concomitant]

REACTIONS (8)
  - Pneumonia [Fatal]
  - Chest X-ray abnormal [Fatal]
  - Oxygen saturation decreased [Fatal]
  - Cardiac failure [Unknown]
  - Renal failure [Unknown]
  - Oedema [Unknown]
  - Hypertension [Unknown]
  - Oliguria [Unknown]
